FAERS Safety Report 9564926 (Version 1)
Quarter: 2013Q3

REPORT INFORMATION
  Report Type: Spontaneous
  Country: FR (occurrence: FR)
  Receive Date: 20130930
  Receipt Date: 20130930
  Transmission Date: 20140515
  Serious: Yes (Hospitalization)
  Sender: FDA-Public Use
  Company Number: PHHY2013FR107562

PATIENT
  Age: 71 Year
  Sex: Female

DRUGS (13)
  1. ACLASTA [Suspect]
     Indication: SPINAL COMPRESSION FRACTURE
     Dosage: 1 DF, IN 1 YEAR
     Route: 042
     Dates: start: 201009
  2. HYDROCORTISONE [Suspect]
     Indication: PLEUROPERICARDITIS
     Dosage: 30 MG, (10 MG 3 IN 1 DAY)
     Route: 048
     Dates: start: 200904
  3. HYDROCORTISONE [Suspect]
     Dosage: 20 MG, TID
     Route: 048
     Dates: start: 201005
  4. HYDROCORTISONE [Suspect]
     Dosage: 30 MG, (20 MG IN THE MORNING AND 10 MG IN THE EVENING)
     Route: 048
     Dates: start: 20100723
  5. DIFFU K [Concomitant]
     Indication: HYPOKALAEMIA
     Dosage: 3 DF, (1 DF 3 IN 1 DAY)
     Route: 048
     Dates: start: 201007
  6. CALCIDOSE VITAMINE D [Concomitant]
     Dosage: 2 DF, (1 DF, 2 IN 1 DAY)
     Route: 048
     Dates: start: 201006
  7. PREVISCAN [Concomitant]
     Dosage: 1.5 DF,(1.5 DF, 1 IN 1 DAY)
     Route: 048
     Dates: start: 201006, end: 201011
  8. SERETIDE DISKUS [Concomitant]
     Dosage: 2 DF, (1 DF, 2 IN 1 DAY)
  9. ARCOXIA [Concomitant]
     Dosage: 1 DF, (1 DF, 1 IN 1 DAY)
     Route: 048
     Dates: start: 2010, end: 201011
  10. LEVOTHYROX [Concomitant]
     Indication: THYROIDECTOMY
     Dosage: 1 DF, (1 DF, 1 IN 1 DAY)
     Route: 048
  11. EFFEXOR [Concomitant]
     Indication: DEPRESSION
     Dosage: 1 DF, (1 DF, 1 IN 1 DAY)
     Route: 048
  12. INEXIUM//ESOMEPRAZOLE MAGNESIUM [Concomitant]
     Dosage: 1 DF, (1 DF, 1 IN 1 DAY)
  13. AMLOR [Suspect]
     Dosage: 1 DF, (1 DF, 1 IN 1 DAY)
     Route: 048
     Dates: start: 201006

REACTIONS (1)
  - Bone fissure [Recovering/Resolving]
